FAERS Safety Report 5369697-6 (Version None)
Quarter: 2007Q2

REPORT INFORMATION
  Report Type: 
  Country: None (occurrence: None)
  Receive Date: 20070625
  Receipt Date: 20070613
  Transmission Date: 20071010
  Serious: Yes (Disabling)
  Sender: FDA-Public Use
  Company Number: US-PFIZER INC-2007049322

PATIENT
  Sex: Female

DRUGS (2)
  1. GABAPENTIN [Suspect]
     Indication: PAIN
  2. GABAPENTIN [Suspect]
     Indication: NERVE INJURY

REACTIONS (1)
  - CONDITION AGGRAVATED [None]
